FAERS Safety Report 7134382-7 (Version None)
Quarter: 2010Q4

REPORT INFORMATION
  Report Type: 
  Country: None (occurrence: None)
  Receive Date: 20101130
  Receipt Date: 20101130
  Transmission Date: 20110411
  Serious: No
  Sender: FDA-Public Use
  Company Number: None

PATIENT
  Age: 7 Year
  Sex: Male
  Weight: 24.4942 kg

DRUGS (2)
  1. SINGULAIR [Suspect]
     Indication: ASTHMA
     Dosage: 5MG 1X A DAY PO
     Route: 048
     Dates: start: 20100929, end: 20101120
  2. SINGULAIR [Suspect]
     Indication: HYPERSENSITIVITY
     Dosage: 5MG 1X A DAY PO
     Route: 048
     Dates: start: 20100929, end: 20101120

REACTIONS (7)
  - ABNORMAL BEHAVIOUR [None]
  - AGGRESSION [None]
  - EMOTIONAL DISORDER [None]
  - EYE ROLLING [None]
  - FATIGUE [None]
  - MUSCLE TWITCHING [None]
  - NIGHTMARE [None]
